FAERS Safety Report 7646766-9 (Version None)
Quarter: 2011Q3

REPORT INFORMATION
  Report Type: 
  Country: None (occurrence: None)
  Receive Date: 20110729
  Receipt Date: 20110729
  Transmission Date: 20111222
  Serious: Yes (Other)
  Sender: FDA-Public Use
  Company Number: None

PATIENT
  Age: 80 Year
  Sex: Female
  Weight: 56.6996 kg

DRUGS (1)
  1. AMLODIPINE BESYLATE [Suspect]
     Indication: HYPERTENSION
     Dosage: 1 - 5MG TABLET 2X PER DAY 1 PER DAY RAISES TO 2 PER DAY IN 2011
     Dates: start: 20100901, end: 20110627

REACTIONS (6)
  - ARTHRITIS [None]
  - OEDEMA PERIPHERAL [None]
  - JOINT SWELLING [None]
  - LOWER EXTREMITY MASS [None]
  - MOBILITY DECREASED [None]
  - ARTHRALGIA [None]
